FAERS Safety Report 6831841-9 (Version None)
Quarter: 2010Q3

REPORT INFORMATION
  Report Type: 
  Country: None (occurrence: None)
  Receive Date: 20100706
  Receipt Date: 20100622
  Transmission Date: 20110219
  Serious: Yes (Other)
  Sender: FDA-Public Use
  Company Number: 2010AP011305

PATIENT
  Sex: Male

DRUGS (2)
  1. ALENDRONATE SODIUM [Suspect]
     Dosage: TAB;PO
     Route: 048
  2. ROSUVASTATIN (ROSUVASTATIN) [Concomitant]

REACTIONS (1)
  - NEUROPATHY PERIPHERAL [None]
